FAERS Safety Report 4409994-1 (Version None)
Quarter: 2004Q3

REPORT INFORMATION
  Report Type: 
  Country: None (occurrence: None)
  Receive Date: 20040728
  Receipt Date: 20040319
  Transmission Date: 20050211
  Serious: Yes (Hospitalization)
  Sender: FDA-Public Use
  Company Number: US-ROCHE-362142

PATIENT
  Age: 38 Year
  Sex: Female
  Weight: 49.7 kg

DRUGS (9)
  1. DACLIZUMAB [Suspect]
     Route: 042
     Dates: start: 20031124, end: 20031124
  2. DACLIZUMAB [Suspect]
     Route: 042
     Dates: start: 20040107, end: 20040107
  3. PREDNISOLONE [Concomitant]
     Dosage: INCREASED TO 40 MG DAILY ON 19 MARCH 2004
     Route: 048
  4. CIPRO [Concomitant]
     Dates: start: 20040207, end: 20040214
  5. NYQUIL [Concomitant]
     Dates: start: 20031203, end: 20031206
  6. PURIFIED PROTEIN DERIVATIVE [Concomitant]
     Dates: start: 20040120, end: 20040120
  7. CANDIDA ALBICANS [Concomitant]
     Dates: start: 20040120, end: 20040120
  8. IRON [Concomitant]
     Dates: start: 20030215
  9. ATIVAN [Concomitant]
     Dates: start: 20020615

REACTIONS (4)
  - ANAEMIA [None]
  - COLITIS ULCERATIVE [None]
  - LUNG NEOPLASM [None]
  - UPPER RESPIRATORY TRACT CONGESTION [None]
